FAERS Safety Report 7548955-0 (Version None)
Quarter: 2011Q2

REPORT INFORMATION
  Report Type: 
  Country: None (occurrence: None)
  Receive Date: 20110615
  Receipt Date: 20110614
  Transmission Date: 20111010
  Serious: Yes (Hospitalization, Other)
  Sender: FDA-Public Use
  Company Number: VE-PFIZER INC-2011122286

PATIENT
  Age: 59 Year
  Sex: Female

DRUGS (1)
  1. CADUET [Suspect]
     Indication: HYPERTENSION
     Dosage: 5/20 MG, 1X/DAY
     Route: 048
     Dates: start: 20070101

REACTIONS (2)
  - HYPERTENSIVE CRISIS [None]
  - TRANSIENT GLOBAL AMNESIA [None]
